FAERS Safety Report 7050196-0 (Version None)
Quarter: 2010Q4

REPORT INFORMATION
  Report Type: 
  Country: None (occurrence: None)
  Receive Date: 20101018
  Receipt Date: 20101014
  Transmission Date: 20110411
  Serious: Yes (Hospitalization, Other)
  Sender: FDA-Public Use
  Company Number: FR-BRISTOL-MYERS SQUIBB COMPANY-15293582

PATIENT
  Age: 40 Year
  Sex: Male

DRUGS (3)
  1. ABILIFY [Suspect]
     Indication: SCHIZOPHRENIA, DISORGANISED TYPE
     Dosage: INITIAL DOSE:30MG;REDUCED TO 20MG 05SEP10
     Route: 048
  2. TEMESTA [Concomitant]
  3. LORAZEPAM [Concomitant]
     Indication: ANXIETY

REACTIONS (3)
  - ABNORMAL BEHAVIOUR [None]
  - DELUSION [None]
  - EXTRAPYRAMIDAL DISORDER [None]
